FAERS Safety Report 6612634-4 (Version None)
Quarter: 2010Q1

REPORT INFORMATION
  Report Type: 
  Country: None (occurrence: None)
  Receive Date: 20100303
  Receipt Date: 20100301
  Transmission Date: 20100710
  Serious: Yes (Other)
  Sender: FDA-Public Use
  Company Number: ES-ROXANE LABORATORIES, INC.-2010-RO-00219RO

PATIENT
  Age: 62 Year
  Sex: Male

DRUGS (7)
  1. CYCLOPHOSPHAMIDE [Suspect]
     Indication: CHRONIC LYMPHOCYTIC LEUKAEMIA
     Dates: start: 20080901, end: 20081101
  2. CYCLOPHOSPHAMIDE [Suspect]
     Indication: LYMPHADENOPATHY
  3. RITUXIMAB [Suspect]
     Indication: CHRONIC LYMPHOCYTIC LEUKAEMIA
     Dates: start: 20080901, end: 20081101
  4. RITUXIMAB [Suspect]
     Indication: LYMPHADENOPATHY
  5. FLUDARABINE [Suspect]
     Indication: CHRONIC LYMPHOCYTIC LEUKAEMIA
     Dates: start: 20080901, end: 20081101
  6. FLUDARABINE [Suspect]
     Indication: LYMPHADENOPATHY
  7. BARACLUDE [Concomitant]
     Indication: HEPATITIS B
     Dosage: 0.5 MG
     Route: 048
     Dates: start: 20090212

REACTIONS (2)
  - HEPATITIS B [None]
  - LIVER DISORDER [None]
